FAERS Safety Report 16474928 (Version 2)
Quarter: 2019Q3

REPORT INFORMATION
  Report Type: Spontaneous
  Country: US (occurrence: US)
  Receive Date: 20190625
  Receipt Date: 20190711
  Transmission Date: 20191004
  Serious: No
  Sender: FDA-Public Use
  Company Number: US-TRIS PHARMA, INC.-19US000033

PATIENT

DRUGS (2)
  1. QUILLICHEW ER [Suspect]
     Active Substance: METHYLPHENIDATE HYDROCHLORIDE
     Indication: ATTENTION DEFICIT/HYPERACTIVITY DISORDER
     Dosage: UNK
     Route: 065
  2. QUILLIVANT XR [Suspect]
     Active Substance: METHYLPHENIDATE HYDROCHLORIDE
     Indication: ATTENTION DEFICIT/HYPERACTIVITY DISORDER
     Dosage: 8 MILLILITER
     Route: 048

REACTIONS (5)
  - Anxiety [Not Recovered/Not Resolved]
  - Product taste abnormal [Unknown]
  - Product dispensing error [Unknown]
  - Dysgeusia [Not Recovered/Not Resolved]
  - Product storage error [Unknown]
